FAERS Safety Report 18341176 (Version 1)
Quarter: 2020Q4

REPORT INFORMATION
  Report Type: Spontaneous
  Country: US (occurrence: US)
  Receive Date: 20201003
  Receipt Date: 20201003
  Transmission Date: 20210113
  Serious: Yes (Hospitalization, Other)
  Sender: FDA-Public Use
  Company Number: US-LUPIN PHARMACEUTICALS INC.-2020-03879

PATIENT
  Sex: Female

DRUGS (7)
  1. INDOMETHACIN [INDOMETACIN] [Suspect]
     Active Substance: INDOMETHACIN
     Dosage: 25 MG EVERY SIX HOURS FOR 72 H POSTOPERATIVELY
     Route: 064
  2. ENOXAPARIN [Suspect]
     Active Substance: ENOXAPARIN
     Indication: THROMBOSIS PROPHYLAXIS
     Dosage: UNK
     Route: 064
  3. CISPLATIN. [Suspect]
     Active Substance: CISPLATIN
     Indication: OVARIAN GERM CELL TERATOMA
     Dosage: FIRST CHEMOTHERAPY CYCLE : AT 30 WEEKS OF GESTATION; SECOND CYCLE BEGAN AT 33 WEEKS OF GESTATION
     Route: 064
  4. ETOPOSIDE. [Suspect]
     Active Substance: ETOPOSIDE
     Indication: OVARIAN GERM CELL TERATOMA
     Dosage: 100 MILLIGRAM/SQ. METER, QD (FIRST CHEMOTHERAPY CYCLE : AT 30 WEEKS OF GESTATION; SECOND CYCLE BEGAN
     Route: 064
  5. BLEOMYCIN [Suspect]
     Active Substance: BLEOMYCIN SULFATE
     Indication: OVARIAN GERM CELL TERATOMA
     Dosage: FIRST CHEMOTHERAPY CYCLE: 20 IU/M2 AT 30 WEEKS OF GESTATION; SECOND CYCLE BEGAN AT 33 WEEKS OF GESTA
     Route: 064
  6. BETAMETHASONE. [Suspect]
     Active Substance: BETAMETHASONE
     Indication: PRODUCT USED FOR UNKNOWN INDICATION
     Dosage: UNK
     Route: 064
  7. INDOMETHACIN [INDOMETACIN] [Suspect]
     Active Substance: INDOMETHACIN
     Indication: PRODUCT USED FOR UNKNOWN INDICATION
     Dosage: 50 MG WAS ADMINISTERED ONE HOUR PRIOR TO SURGERY
     Route: 064

REACTIONS (2)
  - Low birth weight baby [Unknown]
  - Foetal exposure during pregnancy [Unknown]
